FAERS Safety Report 8936422 (Version 8)
Quarter: 2016Q1

REPORT INFORMATION
  Report Type: Report from Study
  Country: JP (occurrence: JP)
  Receive Date: 20121130
  Receipt Date: 20160316
  Transmission Date: 20160526
  Serious: Yes (Hospitalization)
  Sender: FDA-Public Use
  Company Number: JP-PFIZER INC-2012297752

PATIENT
  Age: 62 Year
  Sex: Female
  Weight: 58.4 kg

DRUGS (16)
  1. NIVADIL [Concomitant]
     Active Substance: NILVADIPINE
     Dosage: 2 MG, 1X/DAY
     Route: 048
     Dates: start: 20101112
  2. PARIET [Concomitant]
     Active Substance: RABEPRAZOLE SODIUM
     Dosage: 10 MG, 1X/DAY
     Route: 048
     Dates: start: 20101112
  3. MAGMITT [Concomitant]
     Active Substance: MAGNESIUM OXIDE
     Dosage: 500 MG, 3X/DAY
     Route: 048
     Dates: start: 20101112
  4. WARFARIN [Concomitant]
     Active Substance: WARFARIN
     Dosage: 2-4 MG/DAY
     Route: 048
     Dates: start: 20121108
  5. CRIZOTINIB [Suspect]
     Active Substance: CRIZOTINIB
     Dosage: 200 MG, 2X/DAY
     Route: 048
     Dates: start: 20121209, end: 20131021
  6. THEO-DUR [Concomitant]
     Active Substance: THEOPHYLLINE ANHYDROUS
     Dosage: 100 MG, 2X/DAY
     Route: 048
     Dates: start: 20101112
  7. NORVASC [Concomitant]
     Active Substance: AMLODIPINE BESYLATE
     Dosage: 5 MG, 1X/DAY
     Route: 048
     Dates: start: 20101112
  8. NOVO HEPARIN [Concomitant]
     Active Substance: HEPARIN SODIUM
     Dosage: 10000 IU, 1X/DAY
     Route: 041
     Dates: start: 20121030, end: 20121112
  9. SINGULAIR [Concomitant]
     Active Substance: MONTELUKAST SODIUM
     Dosage: 10 MG, 1X/DAY
     Route: 048
     Dates: start: 20101112
  10. CRESTOR [Concomitant]
     Active Substance: ROSUVASTATIN CALCIUM
     Dosage: 2.5 MG, 1X/DAY
     Route: 048
     Dates: start: 20101112
  11. SYMBICORT [Concomitant]
     Active Substance: BUDESONIDE\FORMOTEROL FUMARATE DIHYDRATE
     Dosage: UNK, 6 TIMES DAILY
     Route: 045
     Dates: start: 20101112
  12. CRIZOTINIB [Suspect]
     Active Substance: CRIZOTINIB
     Indication: NON-SMALL CELL LUNG CANCER
     Dosage: 250 MG, 2X/DAY
     Route: 048
     Dates: start: 20121101, end: 20121120
  13. BLOPRESS [Concomitant]
     Active Substance: CANDESARTAN CILEXETIL
     Dosage: 8 MG, 1X/DAY
     Route: 048
     Dates: start: 20101112
  14. FORTEO [Concomitant]
     Active Substance: TERIPARATIDE
     Dosage: 20 UG, 1X/DAY
     Route: 058
     Dates: start: 20120612, end: 20121128
  15. PREDONINE [Concomitant]
     Active Substance: PREDNISOLONE\PREDNISOLONE ACETATE\PREDNISOLONE SODIUM SUCCINATE
     Indication: ASTHMA
     Dosage: 5 MG, 1X/DAY
     Route: 048
     Dates: start: 20101112
  16. SPIRIVA [Concomitant]
     Active Substance: TIOTROPIUM BROMIDE MONOHYDRATE
     Dosage: 18 UG, 1X/DAY
     Route: 045
     Dates: start: 20101112

REACTIONS (3)
  - Lung infection [Recovering/Resolving]
  - Recall phenomenon [Recovering/Resolving]
  - Radiation pneumonitis [Recovering/Resolving]

NARRATIVE: CASE EVENT DATE: 20121121
